FAERS Safety Report 23845941 (Version 1)
Quarter: 2024Q2

REPORT INFORMATION
  Report Type: Spontaneous
  Country: US (occurrence: US)
  Receive Date: 20240512
  Receipt Date: 20240512
  Transmission Date: 20240715
  Serious: No
  Sender: FDA-Public Use
  Company Number: US-CIPLA LTD.-2023US04249

PATIENT

DRUGS (2)
  1. ALBUTEROL [Suspect]
     Active Substance: ALBUTEROL
     Indication: Asthma
     Dosage: 2 PUFFS DOSE AS NEEDED BUT NOT MORE THAN 4 TIMES
     Dates: start: 2020
  2. ALBUTEROL [Suspect]
     Active Substance: ALBUTEROL
     Dosage: 2 PUFFS DOSE AS NEEDED BUT NOT MORE THAN 4 TIMES
     Dates: start: 20230702

REACTIONS (5)
  - Incorrect dose administered by device [Recovered/Resolved]
  - Device malfunction [Unknown]
  - Device mechanical issue [Unknown]
  - Product quality issue [Unknown]
  - Dizziness [Recovered/Resolved]

NARRATIVE: CASE EVENT DATE: 20230702
